FAERS Safety Report 23545676 (Version 1)
Quarter: 2024Q1

REPORT INFORMATION
  Report Type: Spontaneous
  Country: US (occurrence: US)
  Receive Date: 20240220
  Receipt Date: 20240220
  Transmission Date: 20240409
  Serious: Yes (Other)
  Sender: FDA-Public Use
  Company Number: US-INCYTE CORPORATION-2024IN000992

PATIENT

DRUGS (4)
  1. JAKAFI [Suspect]
     Active Substance: RUXOLITINIB
     Indication: Chronic graft versus host disease in intestine
     Dosage: UNK
     Route: 065
  2. JAKAFI [Suspect]
     Active Substance: RUXOLITINIB
     Indication: Chronic graft versus host disease in skin
  3. BELUMOSUDIL [Suspect]
     Active Substance: BELUMOSUDIL
     Indication: Chronic graft versus host disease in skin
     Dosage: UNK
     Route: 065
  4. BELUMOSUDIL [Suspect]
     Active Substance: BELUMOSUDIL
     Indication: Chronic graft versus host disease in intestine

REACTIONS (6)
  - Cytopenia [Unknown]
  - Adrenal insufficiency [Unknown]
  - Pneumonia fungal [Unknown]
  - Cytomegalovirus infection reactivation [Unknown]
  - Chronic graft versus host disease in skin [Not Recovered/Not Resolved]
  - Disease progression [Not Recovered/Not Resolved]
